FAERS Safety Report 16898895 (Version 3)
Quarter: 2019Q4

REPORT INFORMATION
  Report Type: Spontaneous
  Country: US (occurrence: US)
  Receive Date: 20191009
  Receipt Date: 20191216
  Transmission Date: 20200122
  Serious: No
  Sender: FDA-Public Use
  Company Number: US-PFIZER INC-2019432500

PATIENT
  Age: 61 Year
  Sex: Female

DRUGS (1)
  1. XELJANZ [Suspect]
     Active Substance: TOFACITINIB CITRATE
     Dosage: 5 MG, UNK
     Dates: start: 201909

REACTIONS (8)
  - Insomnia [Unknown]
  - Back pain [Unknown]
  - Hypersensitivity [Unknown]
  - Diarrhoea [Unknown]
  - Cough [Unknown]
  - Rhinorrhoea [Unknown]
  - Nausea [Unknown]
  - Nasopharyngitis [Unknown]
